FAERS Safety Report 4447365-2 (Version None)
Quarter: 2004Q3

REPORT INFORMATION
  Report Type: 
  Country: None (occurrence: None)
  Receive Date: 20040802
  Receipt Date: 20040617
  Transmission Date: 20050211
  Serious: No
  Sender: FDA-Public Use
  Company Number: 2004-117454-NL

PATIENT
  Sex: Male

DRUGS (1)
  1. NUVARING [Suspect]

REACTIONS (1)
  - MEDICAL DEVICE DISCOMFORT [None]
